FAERS Safety Report 5514317-0 (Version None)
Quarter: 2007Q4

REPORT INFORMATION
  Report Type: 
  Country: None (occurrence: None)
  Receive Date: 20071113
  Receipt Date: 20070412
  Transmission Date: 20080405
  Serious: No
  Sender: FDA-Public Use
  Company Number: A0646990A

PATIENT
  Age: 75 Year
  Sex: Female

DRUGS (4)
  1. COREG [Suspect]
     Indication: HYPERTENSION
     Dosage: 3.125MG TWICE PER DAY
     Route: 048
     Dates: start: 20070320
  2. CYMBALTA [Suspect]
     Indication: DEPRESSION
     Dosage: 30MG AT NIGHT
     Route: 048
     Dates: start: 20070403, end: 20070409
  3. HYDROCODONE BITARTRATE [Concomitant]
  4. SPIRONOLACTONE [Concomitant]

REACTIONS (4)
  - DRUG INEFFECTIVE [None]
  - FATIGUE [None]
  - MENTAL IMPAIRMENT [None]
  - SOMNOLENCE [None]
